FAERS Safety Report 15436832 (Version 3)
Quarter: 2020Q4

REPORT INFORMATION
  Report Type: Report from Study
  Country: US (occurrence: US)
  Receive Date: 20180927
  Receipt Date: 20201128
  Transmission Date: 20210113
  Serious: Yes (Other)
  Sender: FDA-Public Use
  Company Number: PHEH2018US038276

PATIENT
  Sex: Female

DRUGS (1)
  1. SANDIMMUNE [Suspect]
     Active Substance: CYCLOSPORINE
     Indication: PRODUCT USED FOR UNKNOWN INDICATION
     Dosage: UNK
     Route: 065

REACTIONS (10)
  - Nephropathy [Unknown]
  - Eye swelling [Unknown]
  - Joint effusion [Unknown]
  - Illness [Unknown]
  - Peripheral swelling [Unknown]
  - Swelling [Unknown]
  - Generalised oedema [Unknown]
  - Discomfort [Unknown]
  - Feeling abnormal [Unknown]
  - Disease recurrence [Unknown]
